FAERS Safety Report 4667422-5 (Version None)
Quarter: 2005Q2

REPORT INFORMATION
  Report Type: 
  Country: None (occurrence: None)
  Receive Date: 20050517
  Receipt Date: 20050426
  Transmission Date: 20051028
  Serious: Yes (Other)
  Sender: FDA-Public Use
  Company Number: PHEH2005US03940

PATIENT
  Age: 85 Year
  Sex: Female

DRUGS (3)
  1. GLEEVEC [Suspect]
     Indication: CHRONIC MYELOID LEUKAEMIA
     Dosage: 200 MG, QD, ORAL
     Route: 048
     Dates: start: 20050301
  2. VISUDYNE [Suspect]
     Indication: MACULAR DEGENERATION
     Dosage: 4.8 ML, ONCE/SINGLE, INTRAVENOUS
     Route: 042
     Dates: start: 20050405, end: 20050405
  3. CORTISONE ACETATE TAB [Concomitant]

REACTIONS (4)
  - BACK PAIN [None]
  - MYALGIA [None]
  - NON-CARDIAC CHEST PAIN [None]
  - RETINAL HAEMORRHAGE [None]
